FAERS Safety Report 13891474 (Version 2)
Quarter: 2017Q3

REPORT INFORMATION
  Report Type: Spontaneous
  Country: US (occurrence: US)
  Receive Date: 20170822
  Receipt Date: 20170929
  Transmission Date: 20171127
  Serious: Yes (Other)
  Sender: FDA-Public Use
  Company Number: US-PFIZER INC-2017360471

PATIENT
  Age: 34 Year
  Sex: Male

DRUGS (1)
  1. DESVENLAFAXINE. [Suspect]
     Active Substance: DESVENLAFAXINE
     Indication: DEPRESSION
     Dosage: 50 MG, 1X/DAY
     Route: 048
     Dates: start: 20170812, end: 20170813

REACTIONS (12)
  - Dizziness [Recovered/Resolved]
  - Headache [Recovered/Resolved]
  - Affect lability [Recovering/Resolving]
  - Mydriasis [Recovered/Resolved]
  - Priapism [Recovered/Resolved]
  - Hyperhidrosis [Recovered/Resolved]
  - Balance disorder [Unknown]
  - Hypertension [Recovering/Resolving]
  - Burning sensation [Recovered/Resolved]
  - Emotional distress [Not Recovered/Not Resolved]
  - Cognitive disorder [Recovering/Resolving]
  - Feeling drunk [Not Recovered/Not Resolved]

NARRATIVE: CASE EVENT DATE: 201708
